FAERS Safety Report 6028239-2 (Version None)
Quarter: 2008Q4

REPORT INFORMATION
  Report Type: 
  Country: None (occurrence: None)
  Receive Date: 20081231
  Receipt Date: 20081231
  Transmission Date: 20090506
  Serious: No
  Sender: FDA-Public Use
  Company Number: None

PATIENT
  Sex: Female
  Weight: 103.4 kg

DRUGS (1)
  1. TEMOZOLOMIDE [Suspect]
     Dosage: 4620 MG
     Dates: start: 20081127, end: 20081217

REACTIONS (3)
  - ADHESION [None]
  - OVARIAN CYST [None]
  - PELVIC INFLAMMATORY DISEASE [None]
